FAERS Safety Report 13706023 (Version 2)
Quarter: 2017Q3

REPORT INFORMATION
  Report Type: Spontaneous
  Country: FR (occurrence: FR)
  Receive Date: 20170630
  Receipt Date: 20170808
  Transmission Date: 20171127
  Serious: Yes (Hospitalization)
  Sender: FDA-Public Use
  Company Number: FR-TEVA-781699ROM

PATIENT
  Age: 66 Year
  Sex: Female

DRUGS (17)
  1. CARBOPLATINE HOSPIRA [Suspect]
     Active Substance: CARBOPLATIN
     Indication: BRONCHIAL CARCINOMA
     Route: 042
     Dates: start: 20160617, end: 20160617
  2. LEVETIRACETAM 500 MG [Concomitant]
     Active Substance: LEVETIRACETAM
     Dosage: 3 DOSAGE FORMS DAILY; 1.5 DF IN THE MORNING AND 1.5 DF IN THE EVENING
     Route: 048
     Dates: start: 20160616
  3. NICOTINELL 14 MG [Concomitant]
     Dosage: 1 DOSAGE FORMS DAILY;
  4. LOXEN 20 MG [Concomitant]
     Active Substance: NICARDIPINE HYDROCHLORIDE
     Dosage: 1 DOSAGE FORMS DAILY; 1 DF IN THE MORNING
     Route: 048
     Dates: start: 20160616, end: 20160621
  5. EMEND [Concomitant]
     Active Substance: APREPITANT
     Dosage: 1 DOSAGE FORMS DAILY; 1 DF IN THE MORNING
     Route: 048
  6. KARDEGIC [Concomitant]
     Active Substance: ASPIRIN LYSINE
     Dosage: 1 DOSAGE FORMS DAILY; 1 DF IN THE MORNING
     Route: 048
     Dates: start: 20160616
  7. METFORMINE [Concomitant]
     Active Substance: METFORMIN HYDROCHLORIDE
     Dosage: 3000 MILLIGRAM DAILY; 1 DF IN THE MORNING, 1 DF IN NOON AND 1 DF IN THE EVENING
     Route: 048
     Dates: start: 20160616
  8. MEDROL 100 MG [Concomitant]
     Dosage: 1 DOSAGE FORMS DAILY; 1 DF IN THE MORNING
     Route: 048
     Dates: start: 20160616
  9. INEXIUM 40 MG [Concomitant]
     Active Substance: ESOMEPRAZOLE
     Dosage: 1 DOSAGE FORMS DAILY; 1 DF IN THE MORNING
     Route: 048
     Dates: start: 20160616
  10. URBANYL 5 MG [Concomitant]
     Dosage: 2 DOSAGE FORMS DAILY; 1 DF IN THE MORNING AND 1 DF IN THE EVENING
     Route: 048
     Dates: start: 20160616
  11. PARACETAMOL 500 MG [Concomitant]
     Dosage: 4 G PER DAY MAXIMUM
  12. ATORVASTATINE 10 MG [Concomitant]
     Active Substance: ATORVASTATIN
     Dosage: 2 DOSAGE FORMS DAILY; 2 DF IN THE EVENING
     Route: 048
     Dates: start: 20160616
  13. JANUVIA [Concomitant]
     Active Substance: SITAGLIPTIN PHOSPHATE
     Dosage: 1 DOSAGE FORMS DAILY; 1 DF IN THE MORNING
     Route: 048
     Dates: start: 20160616
  14. COTAREG 160 MG/12,5 MG [Concomitant]
     Dosage: 1 DOSAGE FORMS DAILY; 1 DF IN THE MORNING
     Route: 048
     Dates: start: 20160616
  15. ETOPOSIDE TEVA [Suspect]
     Active Substance: ETOPOSIDE
     Indication: BRONCHIAL CARCINOMA
     Route: 042
     Dates: start: 20160617, end: 20160619
  16. ZOLOFT 50 MG [Concomitant]
     Dosage: 1 DOSAGE FORMS DAILY; 1 DF IN THE MORNING
     Route: 048
     Dates: start: 20160616
  17. DIFFU K [Concomitant]
     Active Substance: POTASSIUM CHLORIDE
     Dosage: 1 DOSAGE FORMS DAILY; 1 DF IN THE MORNING

REACTIONS (9)
  - Erysipelas [Recovered/Resolved]
  - Hypotension [Recovered/Resolved]
  - Diarrhoea [Recovered/Resolved]
  - Bone marrow failure [Recovered/Resolved]
  - C-reactive protein increased [Not Recovered/Not Resolved]
  - Neutropenia [Recovered/Resolved]
  - Sepsis [Recovered/Resolved]
  - Hyperthermia [Recovered/Resolved]
  - Thrombocytopenia [Recovered/Resolved]

NARRATIVE: CASE EVENT DATE: 20160619
